FAERS Safety Report 17242558 (Version 7)
Quarter: 2020Q2

REPORT INFORMATION
  Report Type: Spontaneous
  Country: US (occurrence: US)
  Receive Date: 20200107
  Receipt Date: 20200608
  Transmission Date: 20200713
  Serious: Yes (Other)
  Sender: FDA-Public Use
  Company Number: US-SA-2020SA002173

PATIENT

DRUGS (2)
  1. FABRAZYME [Suspect]
     Active Substance: AGALSIDASE BETA
     Indication: FABRY^S DISEASE
     Dosage: 15 MG, QOW
     Route: 041
     Dates: start: 20191105
  2. FABRAZYME [Suspect]
     Active Substance: AGALSIDASE BETA
     Dosage: 35 MG, QOW
     Route: 041
     Dates: start: 20191105

REACTIONS (7)
  - Urticaria [Unknown]
  - Rash [Recovered/Resolved]
  - Arthralgia [Unknown]
  - Pruritus [Unknown]
  - Oral mucosal eruption [Recovered/Resolved]
  - Type 2 diabetes mellitus [Unknown]
  - Joint swelling [Unknown]

NARRATIVE: CASE EVENT DATE: 20191221
